FAERS Safety Report 10029630 (Version 1)
Quarter: 2014Q1

REPORT INFORMATION
  Report Type: Spontaneous
  Country: US (occurrence: None)
  Receive Date: 20140320
  Receipt Date: 20140320
  Transmission Date: 20141002
  Serious: Yes (Other)
  Sender: FDA-Public Use
  Company Number: None

PATIENT
  Age: 61 Year
  Sex: Female
  Weight: 70.31 kg

DRUGS (4)
  1. SUBOXONE [Suspect]
     Indication: FIBROMYALGIA
     Route: 060
     Dates: start: 20140317, end: 20140319
  2. GABAPENTIN [Concomitant]
  3. OMEPRAZOLE [Concomitant]
  4. TRAMADOL [Concomitant]

REACTIONS (2)
  - Product packaging quantity issue [None]
  - Drug dose omission [None]
